FAERS Safety Report 24558902 (Version 1)
Quarter: 2024Q4

REPORT INFORMATION
  Report Type: Spontaneous
  Country: US (occurrence: US)
  Receive Date: 20241029
  Receipt Date: 20241029
  Transmission Date: 20250115
  Serious: Yes (Life-Threatening, Hospitalization, Other)
  Sender: TEVA
  Company Number: US-TEVA-VS-3157388

PATIENT

DRUGS (1)
  1. BUPRENORPHINE [Suspect]
     Active Substance: BUPRENORPHINE
     Indication: Pain
     Route: 065
     Dates: start: 2018, end: 2023

REACTIONS (12)
  - Bowel obstruction surgery [Unknown]
  - Tooth loss [Unknown]
  - Inflammatory bowel disease [Unknown]
  - Somnolence [Unknown]
  - Abnormal loss of weight [Unknown]
  - Tooth infection [Unknown]
  - Urinary incontinence [Unknown]
  - Post procedural complication [Unknown]
  - Internal haemorrhage [Unknown]
  - Withdrawal syndrome [Unknown]
  - Dental caries [Unknown]
  - Catatonia [Unknown]

NARRATIVE: CASE EVENT DATE: 20220101
